FAERS Safety Report 4999216-5 (Version None)
Quarter: 2006Q2

REPORT INFORMATION
  Report Type: 
  Country: None (occurrence: None)
  Receive Date: 20060509
  Receipt Date: 20060509
  Transmission Date: 20061013
  Serious: Yes (Other)
  Sender: FDA-Public Use
  Company Number: None

PATIENT
  Age: 45 Year
  Sex: Female
  Weight: 64.4108 kg

DRUGS (2)
  1. LEVAQUIN [Suspect]
     Indication: PNEUMONIA
     Dosage: 500 MG ONCE DAILY PO
     Route: 048
     Dates: start: 20060427, end: 20060504
  2. ROCEPHIN [Suspect]
     Dosage: IM ONCE IM
     Route: 030

REACTIONS (6)
  - ARTHRALGIA [None]
  - FATIGUE [None]
  - MALAISE [None]
  - RED BLOOD CELL COUNT DECREASED [None]
  - RED BLOOD CELL SEDIMENTATION RATE INCREASED [None]
  - VERTIGO [None]
